APPROVED DRUG PRODUCT: NAVELBINE
Active Ingredient: VINORELBINE TARTRATE
Strength: EQ 10MG BASE/ML **Federal Register determination that product was not discontinued or withdrawn for safety or effectiveness reasons**
Dosage Form/Route: INJECTABLE;INJECTION
Application: N020388 | Product #001
Applicant: PIERRE FABRE MEDICAMENT
Approved: Dec 23, 1994 | RLD: Yes | RS: No | Type: DISCN